FAERS Safety Report 8935337 (Version 1)
Quarter: 2012Q4

REPORT INFORMATION
  Report Type: Spontaneous
  Country: US (occurrence: None)
  Receive Date: 20121127
  Receipt Date: 20121127
  Transmission Date: 20130627
  Serious: No
  Sender: FDA-Public Use
  Company Number: None

PATIENT
  Age: 51 Year
  Sex: Male
  Weight: 83.92 kg

DRUGS (2)
  1. DIAZEPAM [Suspect]
     Indication: NERVE PAIN
     Dosage: every 8 hrs
     Route: 048
     Dates: end: 20121106
  2. DIAZEPAM [Suspect]
     Indication: INSOMNIA
     Dosage: every 8 hrs
     Route: 048
     Dates: end: 20121106

REACTIONS (1)
  - Drug ineffective [None]
